FAERS Safety Report 24249292 (Version 1)
Quarter: 2024Q3

REPORT INFORMATION
  Report Type: Report from Study
  Country: US (occurrence: US)
  Receive Date: 20240826
  Receipt Date: 20240826
  Transmission Date: 20241017
  Serious: Yes (Other)
  Sender: SUNOVION
  Company Number: US-SUMITOMO PHARMA SWITZERLAND GMBH-2024SPA001336

PATIENT

DRUGS (6)
  1. ORGOVYX [Suspect]
     Active Substance: RELUGOLIX
     Indication: Prostate cancer
     Dosage: 360 MG
     Route: 048
  2. ORGOVYX [Suspect]
     Active Substance: RELUGOLIX
     Dosage: 120 MG, QD
     Route: 048
     Dates: start: 20240501
  3. LOSARTAN [Suspect]
     Active Substance: LOSARTAN\LOSARTAN POTASSIUM
     Dosage: UNK
     Route: 065
  4. LOSARTAN [Suspect]
     Active Substance: LOSARTAN\LOSARTAN POTASSIUM
     Dosage: UNK
     Route: 065
  5. TAMSULOSIN [Suspect]
     Active Substance: TAMSULOSIN
     Route: 065
  6. CIALIS [Suspect]
     Active Substance: TADALAFIL
     Route: 065

REACTIONS (8)
  - Loss of consciousness [Unknown]
  - Fall [Unknown]
  - Muscle atrophy [Unknown]
  - Blood pressure decreased [Unknown]
  - Muscular weakness [Unknown]
  - Joint injury [Unknown]
  - Loss of libido [Unknown]
  - Dizziness [Unknown]
